FAERS Safety Report 23035495 (Version 1)
Quarter: 2023Q4

REPORT INFORMATION
  Report Type: Spontaneous
  Country: US (occurrence: US)
  Receive Date: 20231006
  Receipt Date: 20231006
  Transmission Date: 20240110
  Serious: No
  Sender: FDA-Public Use
  Company Number: US-AMGEN-USASP2023176342

PATIENT
  Age: 41 Year
  Sex: Female

DRUGS (1)
  1. ADALIMUMAB [Suspect]
     Active Substance: ADALIMUMAB
     Indication: Granulomatous rosacea
     Dosage: 40 MILLIGRAM, QWK
     Route: 058

REACTIONS (5)
  - Erythema [Recovered/Resolved]
  - Skin hyperpigmentation [Recovered/Resolved]
  - Drug effective for unapproved indication [Unknown]
  - Off label use [Unknown]
  - Scar [Recovered/Resolved]
